FAERS Safety Report 22532869 (Version 1)
Quarter: 2023Q2

REPORT INFORMATION
  Report Type: Spontaneous
  Country: FR (occurrence: FR)
  Receive Date: 20230607
  Receipt Date: 20230607
  Transmission Date: 20230722
  Serious: Yes (Hospitalization)
  Sender: FDA-Public Use
  Company Number: FR-NOVPHSZ-PHHY2019FR178196

PATIENT
  Age: 64 Year
  Sex: Female
  Weight: 50 kg

DRUGS (2)
  1. CYTARABINE [Suspect]
     Active Substance: CYTARABINE
     Indication: Acute myeloid leukaemia
     Dosage: 9400 MG, QD
     Route: 042
     Dates: start: 20171021
  2. DESFERAL [Suspect]
     Active Substance: DEFEROXAMINE MESYLATE
     Indication: Prophylaxis
     Dosage: 2500 MG, QD
     Route: 042
     Dates: start: 20171030, end: 20171109

REACTIONS (4)
  - Macular oedema [Recovered/Resolved]
  - Visual acuity reduced [Recovered/Resolved]
  - Dyschromatopsia [Not Recovered/Not Resolved]
  - Retinal detachment [Recovered/Resolved]

NARRATIVE: CASE EVENT DATE: 20171102
